FAERS Safety Report 9655553 (Version 2)
Quarter: 2013Q4

REPORT INFORMATION
  Report Type: Report from Study
  Country: BR (occurrence: BR)
  Receive Date: 20131029
  Receipt Date: 20131103
  Transmission Date: 20140711
  Serious: Yes (Other)
  Sender: FDA-Public Use
  Company Number: BR-US-EMD SERONO, INC.-7245213

PATIENT
  Age: 35 Year
  Sex: Male

DRUGS (3)
  1. REBIF [Suspect]
     Indication: RELAPSING-REMITTING MULTIPLE SCLEROSIS
     Dates: start: 20080324, end: 20130930
  2. REBIF [Suspect]
     Dates: start: 20131001
  3. REBIF [Suspect]

REACTIONS (4)
  - Labyrinthitis [Recovering/Resolving]
  - Central nervous system inflammation [Recovered/Resolved]
  - Vision blurred [Recovering/Resolving]
  - Dizziness [Recovering/Resolving]
